FAERS Safety Report 7644479-0 (Version None)
Quarter: 2011Q3

REPORT INFORMATION
  Report Type: 
  Country: None (occurrence: None)
  Receive Date: 20110729
  Receipt Date: 20110719
  Transmission Date: 20111222
  Serious: Yes (Other)
  Sender: FDA-Public Use
  Company Number: GB-NAPPMUNDI-GBR-2011-0008465

PATIENT
  Sex: Male
  Weight: 115.4 kg

DRUGS (12)
  1. HYDROMORPHONE HCL [Suspect]
     Dosage: 40 MG, DAILY
     Route: 048
     Dates: start: 20110224, end: 20110303
  2. HYDROMORPHONE HCL [Suspect]
     Dosage: 32 MG, DAILY
     Route: 048
     Dates: start: 20110218, end: 20110223
  3. HYDROMORPHONE HCL [Suspect]
     Dosage: 24 MG, DAILY
     Route: 048
     Dates: start: 20110217, end: 20110217
  4. HYDROMORPHONE HCL IR CAPSULES [Concomitant]
     Indication: PAIN
     Dosage: UNK, SEE TEXT
     Dates: start: 20110217, end: 20110311
  5. DIAZEPAM [Concomitant]
     Indication: MUSCLE SPASMS
     Dosage: 30 MG, DAILY
     Route: 048
     Dates: start: 20040601
  6. VENLAFAXINE [Concomitant]
     Indication: ANXIETY
  7. DIHYDROCODEINE BITARTRATE INJ [Concomitant]
     Indication: MUSCLE SPASMS
     Dosage: 30 MG, DAILY
     Route: 048
     Dates: start: 20110513
  8. HYDROMORPHONE HCL [Suspect]
     Indication: PAIN
     Dosage: 48 MG, DAILY
     Route: 048
     Dates: start: 20110304, end: 20110505
  9. HYDROMORPHONE HCL IR CAPSULES [Concomitant]
     Dosage: 2.6 MG, THRICE
     Dates: start: 20110311, end: 20110504
  10. INFUMORPH [Concomitant]
     Indication: MUSCLE SPASMS
     Dosage: 120 MG, DAILY
     Route: 048
     Dates: start: 20110505
  11. VENLAFAXINE [Concomitant]
     Indication: DEPRESSION
     Dosage: 150 MG, DAILY
     Route: 048
     Dates: start: 20081110
  12. ZOPLICONE [Concomitant]
     Indication: SLEEP DISORDER
     Dosage: 7.5 MG, DAILY
     Route: 048
     Dates: start: 20110510

REACTIONS (1)
  - TOOTH LOSS [None]
